FAERS Safety Report 9741908 (Version 1)
Quarter: 2013Q4

REPORT INFORMATION
  Report Type: Report from Study
  Country: US (occurrence: US)
  Receive Date: 20131210
  Receipt Date: 20131210
  Transmission Date: 20140711
  Serious: Yes (Death)
  Sender: FDA-Public Use
  Company Number: US-ROCHE-1313857

PATIENT
  Sex: Female

DRUGS (5)
  1. AVASTIN [Suspect]
     Indication: THYROID CANCER
     Route: 042
     Dates: start: 20120619
  2. AVASTIN [Suspect]
     Route: 042
     Dates: start: 20120327
  3. AVASTIN [Suspect]
     Route: 042
     Dates: start: 20120306
  4. TORISEL [Concomitant]
     Route: 042
     Dates: start: 20120306
  5. SODIUM CHLORIDE [Concomitant]
     Dosage: SODIUM CHLORIDE INJECTION 0.9 PERCENT
     Route: 065

REACTIONS (1)
  - Disease progression [Fatal]
